FAERS Safety Report 25617237 (Version 1)
Quarter: 2025Q3

REPORT INFORMATION
  Report Type: Spontaneous
  Country: US (occurrence: US)
  Receive Date: 20250729
  Receipt Date: 20250729
  Transmission Date: 20251020
  Serious: Yes (Other)
  Sender: SANOFI AVENTIS
  Company Number: US-SA-2025SA218305

PATIENT
  Age: 59 Year
  Sex: Female

DRUGS (23)
  1. DUPIXENT [Suspect]
     Active Substance: DUPILUMAB
     Indication: Dermatitis atopic
     Route: 058
     Dates: start: 20200616
  2. DEXAMETHASONE [Concomitant]
     Active Substance: DEXAMETHASONE
  3. TRIAMCINOLONE [Concomitant]
     Active Substance: TRIAMCINOLONE
  4. CLOBETASOL [Concomitant]
     Active Substance: CLOBETASOL
  5. PERJETA [Concomitant]
     Active Substance: PERTUZUMAB
  6. COENZYME Q10 [Concomitant]
     Active Substance: DIETARY SUPPLEMENT\UBIDECARENONE
  7. HERCEPTIN [Concomitant]
     Active Substance: TRASTUZUMAB
  8. DILAUDID [Concomitant]
     Active Substance: HYDROMORPHONE HYDROCHLORIDE
  9. VALTREX [Concomitant]
     Active Substance: VALACYCLOVIR HYDROCHLORIDE
  10. TACROLIMUS [Concomitant]
     Active Substance: TACROLIMUS
  11. FAMOTIDINE [Concomitant]
     Active Substance: FAMOTIDINE
  12. NYSTATIN [Concomitant]
     Active Substance: NYSTATIN
  13. CALCIUM [Concomitant]
     Active Substance: CALCIUM
  14. CYCLOBENZAPRINE [Concomitant]
     Active Substance: CYCLOBENZAPRINE
  15. VITAMIN D3 [Concomitant]
     Active Substance: CHOLECALCIFEROL
  16. ESTRING [Concomitant]
     Active Substance: ESTRADIOL
  17. VITAMIN B COMPLEX [Concomitant]
     Active Substance: CYANOCOBALAMIN\DEXPANTHENOL\NIACINAMIDE\PYRIDOXINE HYDROCHLORIDE\RIBOFLAVIN 5^-PHOSPHATE SODIUM\THIA
  18. MONTELUKAST [Concomitant]
     Active Substance: MONTELUKAST
  19. TAMOXIFEN [Concomitant]
     Active Substance: TAMOXIFEN
  20. FLUTICASONE [Concomitant]
     Active Substance: FLUTICASONE
  21. CETIRIZINE HYDROCHLORIDE [Concomitant]
     Active Substance: CETIRIZINE HYDROCHLORIDE
  22. LORATADINE [Concomitant]
     Active Substance: LORATADINE
  23. GABAPENTIN [Concomitant]
     Active Substance: GABAPENTIN

REACTIONS (2)
  - Herpes ophthalmic [Unknown]
  - Gastritis [Unknown]

NARRATIVE: CASE EVENT DATE: 20250722
